FAERS Safety Report 20780632 (Version 2)
Quarter: 2022Q4

REPORT INFORMATION
  Report Type: Spontaneous
  Country: US (occurrence: US)
  Receive Date: 20220504
  Receipt Date: 20221013
  Transmission Date: 20230113
  Serious: No
  Sender: FDA-Public Use
  Company Number: US-SA-SAC20220428000214

PATIENT
  Age: 12 Year
  Sex: Male

DRUGS (1)
  1. DUPIXENT [Suspect]
     Active Substance: DUPILUMAB
     Dosage: 300 MG
     Route: 058
     Dates: start: 202110

REACTIONS (2)
  - Inappropriate schedule of product administration [Unknown]
  - Device dispensing error [Unknown]

NARRATIVE: CASE EVENT DATE: 20220201
